FAERS Safety Report 8762635 (Version 2)
Quarter: 2014Q4

REPORT INFORMATION
  Report Type: Spontaneous
  Country: US (occurrence: US)
  Receive Date: 20120830
  Receipt Date: 20141208
  Transmission Date: 20150529
  Serious: No
  Sender: FDA-Public Use
  Company Number: US-009507513-1208USA011786

PATIENT
  Sex: Male
  Weight: 82.86 kg

DRUGS (1)
  1. PROSCAR [Suspect]
     Active Substance: FINASTERIDE
     Indication: ALOPECIA
     Dosage: UNK
     Route: 048
     Dates: start: 20050410, end: 20060724

REACTIONS (14)
  - Peyronie^s disease [Unknown]
  - Libido decreased [Unknown]
  - Hyperlipidaemia [Unknown]
  - Depression [Unknown]
  - Rhinitis [Unknown]
  - Skin disorder [Unknown]
  - Anxiety [Unknown]
  - Plantar fasciitis [Unknown]
  - Rash [Unknown]
  - Sexual dysfunction [Unknown]
  - Cognitive disorder [Unknown]
  - Back pain [Unknown]
  - Weight decreased [Unknown]
  - Drug administration error [Unknown]

NARRATIVE: CASE EVENT DATE: 20050410
